FAERS Safety Report 9443742 (Version 4)
Quarter: 2013Q3

REPORT INFORMATION
  Report Type: Spontaneous
  Country: US (occurrence: US)
  Receive Date: 20130806
  Receipt Date: 20130904
  Transmission Date: 20140515
  Serious: Yes (Hospitalization)
  Sender: FDA-Public Use
  Company Number: US-GILEAD-2013-0080893

PATIENT
  Sex: Male

DRUGS (3)
  1. LETAIRIS [Suspect]
     Indication: PULMONARY HYPERTENSION
     Dosage: 5 MG, QD
     Dates: start: 20130717
  2. LETAIRIS [Suspect]
     Indication: RESTRICTIVE PULMONARY DISEASE
  3. REVATIO [Concomitant]

REACTIONS (2)
  - Dyspnoea [Unknown]
  - Fluid retention [Unknown]
